FAERS Safety Report 4450082-6 (Version None)
Quarter: 2004Q3

REPORT INFORMATION
  Report Type: 
  Country: None (occurrence: None)
  Receive Date: 20040915
  Receipt Date: 20040903
  Transmission Date: 20050211
  Serious: Yes (Life-Threatening, Hospitalization)
  Sender: FDA-Public Use
  Company Number: JP-ROCHE-379643

PATIENT
  Age: 51 Year
  Sex: Female

DRUGS (2)
  1. ROCEPHIN [Suspect]
     Dosage: ROUTE: DRIP
     Route: 050
     Dates: start: 20040806, end: 20040816
  2. STRONGER NEO-MINOPHAGEN C [Concomitant]

REACTIONS (1)
  - STEVENS-JOHNSON SYNDROME [None]
